FAERS Safety Report 8781787 (Version 4)
Quarter: 2013Q1

REPORT INFORMATION
  Report Type: Spontaneous
  Country: US (occurrence: US)
  Receive Date: 20120913
  Receipt Date: 20130111
  Transmission Date: 20140127
  Serious: No
  Sender: FDA-Public Use
  Company Number: US-009507513-1209USA000345

PATIENT
  Age: 16 Year
  Sex: Female
  Weight: 83.9 kg

DRUGS (4)
  1. IMPLANON [Suspect]
     Indication: CONTRACEPTION
     Dosage: 68 MG, UNK
     Dates: start: 20120106
  2. ABILIFY [Concomitant]
  3. FLUOXETINE [Concomitant]
  4. MELATONIN [Concomitant]

REACTIONS (3)
  - Device physical property issue [Unknown]
  - Product quality issue [Unknown]
  - No adverse event [Unknown]
